FAERS Safety Report 11656108 (Version 4)
Quarter: 2015Q4

REPORT INFORMATION
  Report Type: Report from Study
  Country: US (occurrence: US)
  Receive Date: 20151023
  Receipt Date: 20151223
  Transmission Date: 20160304
  Serious: Yes (Death, Hospitalization)
  Sender: FDA-Public Use
  Company Number: US-PFIZER INC-2015346270

PATIENT
  Age: 9 Year
  Sex: Male
  Weight: 39 kg

DRUGS (1)
  1. INLYTA [Suspect]
     Active Substance: AXITINIB
     Indication: OSTEOSARCOMA
     Dosage: 1.8 MG/M2, 2X/DAY
     Route: 048
     Dates: start: 20150512, end: 20151005

REACTIONS (5)
  - Respiratory failure [Fatal]
  - Pneumothorax [Recovered/Resolved]
  - Pyrexia [Recovered/Resolved]
  - Pleural effusion [Not Recovered/Not Resolved]
  - Hypoxia [Not Recovered/Not Resolved]

NARRATIVE: CASE EVENT DATE: 20151006
